FAERS Safety Report 11753315 (Version 6)
Quarter: 2015Q4

REPORT INFORMATION
  Report Type: Report from Study
  Country: CA (occurrence: CA)
  Receive Date: 20151119
  Receipt Date: 20151229
  Transmission Date: 20160304
  Serious: Yes (Hospitalization)
  Sender: FDA-Public Use
  Company Number: PHHY2010CA32897

PATIENT
  Sex: Male

DRUGS (3)
  1. COUMADINE [Concomitant]
     Active Substance: WARFARIN SODIUM
     Indication: PRODUCT USED FOR UNKNOWN INDICATION
     Route: 065
  2. HEPARIN [Concomitant]
     Active Substance: HEPARIN SODIUM
     Indication: PRODUCT USED FOR UNKNOWN INDICATION
     Route: 065
  3. SANDOSTATIN LAR DEPOT [Suspect]
     Active Substance: OCTREOTIDE ACETATE
     Indication: GASTROINTESTINAL ANGIODYSPLASIA
     Dosage: 20 MG, QMO (EVERY 4 WEEKS/ ONCE A MONTH)
     Route: 030
     Dates: start: 20080101, end: 20151019

REACTIONS (13)
  - Chromaturia [Unknown]
  - Urinary sediment present [Unknown]
  - Product use issue [Unknown]
  - Renal pain [Unknown]
  - Rash [Unknown]
  - Heart rate irregular [Unknown]
  - Anxiety [Unknown]
  - Blood pressure systolic increased [Unknown]
  - Cough [Unknown]
  - Sputum abnormal [Unknown]
  - Pyrexia [Unknown]
  - Urine output decreased [Unknown]
  - Infection [Unknown]
